FAERS Safety Report 16959701 (Version 2)
Quarter: 2019Q4

REPORT INFORMATION
  Report Type: Spontaneous
  Country: US (occurrence: US)
  Receive Date: 20191025
  Receipt Date: 20191115
  Transmission Date: 20200122
  Serious: No
  Sender: FDA-Public Use
  Company Number: US-CELGENEUS-USA-20191006564

PATIENT
  Sex: Male

DRUGS (3)
  1. THALOMID [Suspect]
     Active Substance: THALIDOMIDE
     Indication: OFF LABEL USE
  2. THALOMID [Suspect]
     Active Substance: THALIDOMIDE
     Indication: BRAIN NEOPLASM MALIGNANT
     Dosage: 50 MILLIGRAM
     Route: 048
     Dates: start: 201907, end: 201910
  3. THALOMID [Suspect]
     Active Substance: THALIDOMIDE
     Indication: PRODUCT ADMINISTERED TO PATIENT OF INAPPROPRIATE AGE

REACTIONS (1)
  - Ependymoma [Not Recovered/Not Resolved]

NARRATIVE: CASE EVENT DATE: 2019
